FAERS Safety Report 7867708-7 (Version None)
Quarter: 2011Q4

REPORT INFORMATION
  Report Type: 
  Country: None (occurrence: None)
  Receive Date: 20111028
  Receipt Date: 20110819
  Transmission Date: 20120403
  Serious: Yes (Other)
  Sender: FDA-Public Use
  Company Number: PHFR2011IE04560

PATIENT
  Sex: Male
  Weight: 84 kg

DRUGS (10)
  1. CHLOROPYRAMINE [Concomitant]
     Indication: PSYCHOTIC DISORDER
     Dosage: 100 MG, BID
     Route: 048
     Dates: start: 20110728, end: 20110801
  2. CLOZARIL [Suspect]
     Dosage: 25 MG, QD
     Route: 048
  3. CLOZARIL [Suspect]
     Route: 048
  4. ATIVAN [Concomitant]
     Indication: AGITATION
     Dosage: 2 MG, TID
     Route: 048
     Dates: start: 20110624
  5. OLANZAPINE [Concomitant]
     Indication: AGITATION
     Dosage: 1 MG, UNK
     Dates: start: 20110801, end: 20110815
  6. METOPROLOL TARTRATE [Concomitant]
     Indication: TACHYCARDIA
     Dosage: 25 MG, UNK
     Route: 048
     Dates: start: 20110729, end: 20110811
  7. CLOZARIL [Suspect]
     Indication: SCHIZOPHRENIA
     Dosage: 12.5 MG, QD
     Route: 065
     Dates: start: 20110720
  8. CLOZARIL [Suspect]
     Route: 048
     Dates: end: 20110804
  9. HALOPERIDOL [Concomitant]
     Indication: AGITATION
     Dosage: 5 MG, TID
     Dates: start: 20110603, end: 20110624
  10. ZOPICLONE [Concomitant]
     Indication: HYPNOTHERAPY
     Dosage: 7 MG, UNK
     Route: 048
     Dates: start: 20110624

REACTIONS (10)
  - TACHYCARDIA [None]
  - CELLULITIS [None]
  - FULL BLOOD COUNT INCREASED [None]
  - TREMOR [None]
  - MALAISE [None]
  - HYPERTENSION [None]
  - AGITATION [None]
  - NO THERAPEUTIC RESPONSE [None]
  - BLOOD ALKALINE PHOSPHATASE INCREASED [None]
  - ALANINE AMINOTRANSFERASE INCREASED [None]
